FAERS Safety Report 9397203 (Version 2)
Quarter: 2013Q3

REPORT INFORMATION
  Report Type: Spontaneous
  Country: US (occurrence: US)
  Receive Date: 20130712
  Receipt Date: 20130829
  Transmission Date: 20140515
  Serious: Yes (Other)
  Sender: FDA-Public Use
  Company Number: US-JNJFOC-20130700734

PATIENT
  Sex: Female
  Weight: 58.97 kg

DRUGS (13)
  1. XARELTO [Suspect]
     Indication: ATRIAL FIBRILLATION
     Route: 048
     Dates: start: 201303
  2. CARVEDILOL [Suspect]
     Indication: BLOOD PRESSURE
     Route: 065
     Dates: end: 201305
  3. DIOVAN [Suspect]
     Indication: BLOOD PRESSURE
     Route: 065
     Dates: start: 201301
  4. BABY ASPIRIN [Suspect]
     Indication: ANTICOAGULANT THERAPY
     Route: 048
     Dates: start: 201303
  5. SPIRIVA [Concomitant]
     Indication: LUNG DISORDER
     Route: 055
  6. FLONASE [Concomitant]
     Indication: LUNG DISORDER
     Route: 045
  7. DIAZEPAM [Concomitant]
     Indication: SLEEP DISORDER
     Route: 048
  8. ATORVASTATIN [Concomitant]
     Indication: BLOOD CHOLESTEROL
     Route: 048
  9. NEXIUM [Concomitant]
     Indication: HIATUS HERNIA
     Route: 048
  10. ZETIA [Concomitant]
     Indication: BLOOD CHOLESTEROL
     Route: 065
  11. ZIAC [Concomitant]
     Indication: BLOOD PRESSURE
     Dosage: 10/6.25 MG
     Route: 048
  12. LABETALOL [Concomitant]
     Indication: BLOOD PRESSURE
     Dosage: 10/6.25 MG
     Route: 048
  13. CATAPRES [Concomitant]
     Indication: BLOOD PRESSURE
     Dosage: 10/6.25 MG
     Route: 062

REACTIONS (8)
  - Dyspnoea [Not Recovered/Not Resolved]
  - Melaena [Not Recovered/Not Resolved]
  - Feeling abnormal [Not Recovered/Not Resolved]
  - Nausea [Not Recovered/Not Resolved]
  - Pain in extremity [Not Recovered/Not Resolved]
  - Gastrointestinal disorder [Not Recovered/Not Resolved]
  - Abdominal pain upper [Recovering/Resolving]
  - Dizziness [Not Recovered/Not Resolved]
